FAERS Safety Report 8997482 (Version 1)
Quarter: 2013Q1

REPORT INFORMATION
  Report Type: Spontaneous
  Country: US (occurrence: US)
  Receive Date: 20130104
  Receipt Date: 20130104
  Transmission Date: 20140127
  Serious: No
  Sender: FDA-Public Use
  Company Number: US-COVIDIEN/TYCO HEALTHCARE/MALLINCKRODT-T201203712

PATIENT
  Sex: Female

DRUGS (1)
  1. ANAFRANIL CAPSULES [Suspect]

REACTIONS (2)
  - Female sexual arousal disorder [Unknown]
  - Yawning [Unknown]
